FAERS Safety Report 25547002 (Version 3)
Quarter: 2025Q4

REPORT INFORMATION
  Report Type: Spontaneous
  Country: MX (occurrence: MX)
  Receive Date: 20250714
  Receipt Date: 20251117
  Transmission Date: 20260118
  Serious: Yes (Hospitalization, Other)
  Sender: NOVO NORDISK
  Company Number: MX-NOVOPROD-1473533

PATIENT
  Age: 56 Year
  Sex: Female

DRUGS (1)
  1. OZEMPIC [Suspect]
     Active Substance: SEMAGLUTIDE
     Indication: Product used for unknown indication
     Dosage: UNK
     Dates: start: 2022

REACTIONS (4)
  - Hepatic failure [Unknown]
  - Hepatic encephalopathy [Unknown]
  - Drug-induced liver injury [Unknown]
  - Hepatitis fulminant [Unknown]
